FAERS Safety Report 9952082 (Version 3)
Quarter: 2014Q2

REPORT INFORMATION
  Report Type: Spontaneous
  Country: US (occurrence: US)
  Receive Date: 20140304
  Receipt Date: 20140401
  Transmission Date: 20141212
  Serious: Yes (Other)
  Sender: FDA-Public Use
  Company Number: US-PFIZER INC-2014057927

PATIENT
  Age: 55 Year
  Sex: Female

DRUGS (4)
  1. PREMPRO [Suspect]
     Dosage: UNK, 1X/DAY
     Dates: start: 201402
  2. PREMPRO [Suspect]
     Dosage: UNK, EVERY ALTERNATE DAY
  3. PREMPRO [Suspect]
     Dosage: UNK
  4. LEVOTHYROXINE SODIUM [Suspect]
     Dosage: UNK

REACTIONS (2)
  - Arthritis [Unknown]
  - Colitis [Unknown]
